FAERS Safety Report 19855598 (Version 1)
Quarter: 2021Q3

REPORT INFORMATION
  Report Type: Spontaneous
  Country: DE (occurrence: JP)
  Receive Date: 20210920
  Receipt Date: 20210920
  Transmission Date: 20211014
  Serious: Yes (Death, Life-Threatening, Other)
  Sender: FDA-Public Use
  Company Number: JP-ELI_LILLY_AND_COMPANY-JP202107000107

PATIENT
  Age: 62 Year
  Sex: Female
  Weight: 31 kg

DRUGS (4)
  1. CARBOPLATIN. [Suspect]
     Active Substance: CARBOPLATIN
     Indication: TONGUE NEOPLASM MALIGNANT STAGE UNSPECIFIED
     Dosage: 84 MG, WEEKLY (1/W)
     Route: 041
     Dates: start: 20210331, end: 20210421
  2. ERBITUX [Suspect]
     Active Substance: CETUXIMAB
     Indication: TONGUE NEOPLASM MALIGNANT STAGE UNSPECIFIED
     Dosage: UNK UNK, UNKNOWN
     Route: 041
     Dates: start: 20210331, end: 20210331
  3. ERBITUX [Suspect]
     Active Substance: CETUXIMAB
     Dosage: 300 MG, WEEKLY (1/W)
     Route: 041
  4. PACLITAXEL. [Suspect]
     Active Substance: PACLITAXEL
     Indication: TONGUE NEOPLASM MALIGNANT STAGE UNSPECIFIED
     Dosage: 97 MG, WEEKLY (1/W)
     Route: 041
     Dates: start: 20210331, end: 20210421

REACTIONS (6)
  - Infected fistula [Unknown]
  - Interstitial lung disease [Fatal]
  - Pneumonia aspiration [Fatal]
  - Neutrophil count decreased [Unknown]
  - Gastric fistula [Unknown]
  - Cardio-respiratory arrest [Fatal]

NARRATIVE: CASE EVENT DATE: 2021
